FAERS Safety Report 8344375-X (Version None)
Quarter: 2012Q2

REPORT INFORMATION
  Report Type: 
  Country: None (occurrence: None)
  Receive Date: 20120508
  Receipt Date: 20120430
  Transmission Date: 20120825
  Serious: Yes (Death, Other)
  Sender: FDA-Public Use
  Company Number: GB-ROCHE-1005844

PATIENT
  Sex: Male

DRUGS (4)
  1. METHOTREXATE [Concomitant]
  2. HYDROXYCHLOROQUINE [Concomitant]
  3. LEFLUNOMIDE [Concomitant]
  4. MABTHERA [Suspect]
     Indication: RHEUMATOID ARTHRITIS
     Dates: start: 20090101

REACTIONS (2)
  - GASTROINTESTINAL CARCINOMA [None]
  - DEATH [None]
